FAERS Safety Report 5209809-8 (Version None)
Quarter: 2006Q4

REPORT INFORMATION
  Report Type: 
  Country: None (occurrence: None)
  Receive Date: 20061128
  Receipt Date: 20060901
  Transmission Date: 20070319
  Serious: No
  Sender: FDA-Public Use
  Company Number: S06-USA-03511-01

PATIENT
  Sex: Female

DRUGS (1)
  1. CAMPRAL [Suspect]
     Dosage: 333 MG TID PO
     Route: 048
     Dates: start: 20060801

REACTIONS (1)
  - DRUG INEFFECTIVE [None]
